FAERS Safety Report 13832671 (Version 2)
Quarter: 2017Q3

REPORT INFORMATION
  Report Type: Spontaneous
  Country: US (occurrence: US)
  Receive Date: 20170804
  Receipt Date: 20170820
  Transmission Date: 20171127
  Serious: Yes (Hospitalization, Other)
  Sender: FDA-Public Use
  Company Number: PHEH2017US024157

PATIENT
  Age: 83 Year
  Sex: Male
  Weight: 78.91 kg

DRUGS (38)
  1. METOPROLOL TARTRATE. [Concomitant]
     Active Substance: METOPROLOL TARTRATE
     Indication: CARDIAC FAILURE CONGESTIVE
     Dosage: 50 MG, UNK
     Route: 065
  2. ENTRESTO [Suspect]
     Active Substance: SACUBITRIL\VALSARTAN
     Dosage: 0.25 DF (49/51 MG), BID
     Route: 048
     Dates: start: 20170510, end: 20170516
  3. FUROSEMIDE. [Concomitant]
     Active Substance: FUROSEMIDE
     Indication: PRODUCT USED FOR UNKNOWN INDICATION
     Dosage: 30 MG, UNK
     Route: 065
  4. FOLIC ACID. [Concomitant]
     Active Substance: FOLIC ACID
     Indication: PRODUCT USED FOR UNKNOWN INDICATION
     Dosage: 40 MG, QD
     Route: 065
  5. ASPIRIN. [Concomitant]
     Active Substance: ASPIRIN
     Dosage: 81 MG, UNK
     Route: 065
  6. HYDROXYUREA. [Concomitant]
     Active Substance: HYDROXYUREA
     Dosage: 40 MG, UNK
     Route: 065
     Dates: start: 20170601
  7. HYDROXYUREA. [Concomitant]
     Active Substance: HYDROXYUREA
     Dosage: 80 MG, UNK
     Route: 065
     Dates: start: 20170629
  8. METOPROLOL TARTRATE. [Concomitant]
     Active Substance: METOPROLOL TARTRATE
     Indication: HYPOTENSION
     Dosage: 100 MG, UNK
     Route: 065
     Dates: start: 2015
  9. FUROSEMIDE. [Concomitant]
     Active Substance: FUROSEMIDE
     Dosage: 40 MG, UNK
     Route: 065
     Dates: start: 20170522, end: 20170606
  10. FUROSEMIDE. [Concomitant]
     Active Substance: FUROSEMIDE
     Dosage: 40 MG, UNK
     Route: 065
     Dates: start: 20170618, end: 20170622
  11. HYDROXYUREA. [Concomitant]
     Active Substance: HYDROXYUREA
     Dosage: 40 MG, UNK
     Route: 065
     Dates: start: 20170612
  12. ENTRESTO [Suspect]
     Active Substance: SACUBITRIL\VALSARTAN
     Indication: CARDIAC FAILURE CONGESTIVE
     Dosage: 50 (24/26) MG, UNK
     Route: 048
     Dates: start: 201510, end: 2016
  13. ENTRESTO [Suspect]
     Active Substance: SACUBITRIL\VALSARTAN
     Dosage: 0.5 (49/51 MG) DF, BID
     Route: 048
     Dates: start: 20170509
  14. FUROSEMIDE. [Concomitant]
     Active Substance: FUROSEMIDE
     Dosage: 20 MG, UNK
     Route: 065
     Dates: start: 20170623, end: 20170701
  15. VITAMIN B12 [Concomitant]
     Active Substance: CYANOCOBALAMIN
     Indication: PRODUCT USED FOR UNKNOWN INDICATION
     Dosage: 1000 OT, UNK
     Route: 065
  16. HYDROXYUREA. [Concomitant]
     Active Substance: HYDROXYUREA
     Dosage: 40 MG, UNK
     Route: 065
     Dates: start: 20170608
  17. HYDROXYUREA. [Concomitant]
     Active Substance: HYDROXYUREA
     Dosage: 80 MG, UNK
     Route: 065
     Dates: start: 20170615
  18. ENTRESTO [Suspect]
     Active Substance: SACUBITRIL\VALSARTAN
     Dosage: 100 (49/51) MG, BID
     Route: 048
     Dates: end: 201705
  19. VALSARTAN. [Suspect]
     Active Substance: VALSARTAN
     Indication: HYPERTENSION
     Dosage: 40 MG, UNK
     Route: 065
     Dates: start: 20170531, end: 20170613
  20. VALSARTAN. [Suspect]
     Active Substance: VALSARTAN
     Dosage: 80 MG, UNK
     Route: 065
     Dates: start: 20170614
  21. ASPIRIN. [Concomitant]
     Active Substance: ASPIRIN
     Dosage: 324 MG, QD
     Route: 065
     Dates: start: 20150530
  22. HYDROXYUREA. [Concomitant]
     Active Substance: HYDROXYUREA
     Dosage: 40 MG, UNK
     Route: 065
     Dates: start: 20170605
  23. ASPIRIN. [Concomitant]
     Active Substance: ASPIRIN
     Indication: PRODUCT USED FOR UNKNOWN INDICATION
     Dosage: 84 MG, QD
     Route: 065
  24. HYDROXYUREA. [Concomitant]
     Active Substance: HYDROXYUREA
     Indication: PRODUCT USED FOR UNKNOWN INDICATION
     Dosage: 40 MG, UNK
     Route: 065
     Dates: start: 20170522
  25. HYDROXYUREA. [Concomitant]
     Active Substance: HYDROXYUREA
     Dosage: 40 MG, UNK
     Route: 065
     Dates: start: 20170525
  26. HYDROXYUREA. [Concomitant]
     Active Substance: HYDROXYUREA
     Dosage: 80 MG, UNK
     Route: 065
     Dates: start: 20170703
  27. CLOPIDOGREL [Concomitant]
     Active Substance: CLOPIDOGREL BISULFATE
     Indication: PRODUCT USED FOR UNKNOWN INDICATION
     Dosage: UNK
     Route: 065
     Dates: start: 20160217
  28. METOPROLOL TARTRATE. [Concomitant]
     Active Substance: METOPROLOL TARTRATE
     Dosage: 50 MG, QHS
     Route: 065
     Dates: start: 20170531
  29. SIMVASTATIN. [Concomitant]
     Active Substance: SIMVASTATIN
     Indication: PRODUCT USED FOR UNKNOWN INDICATION
     Dosage: 20 MG, QD
     Route: 065
  30. FUROSEMIDE. [Concomitant]
     Active Substance: FUROSEMIDE
     Dosage: 40 MG, UNK
     Route: 065
     Dates: start: 20170516
  31. FUROSEMIDE. [Concomitant]
     Active Substance: FUROSEMIDE
     Dosage: 60 MG, UNK
     Route: 065
     Dates: start: 20170517, end: 20170521
  32. POTASSIUM [Concomitant]
     Active Substance: POTASSIUM
     Indication: PRODUCT USED FOR UNKNOWN INDICATION
     Dosage: 550 MG, QD
     Route: 065
  33. COLACE [Concomitant]
     Active Substance: DOCUSATE SODIUM
     Indication: PRODUCT USED FOR UNKNOWN INDICATION
     Route: 065
  34. HYDROXYUREA. [Concomitant]
     Active Substance: HYDROXYUREA
     Dosage: 40 MG, UNK
     Route: 065
     Dates: start: 20170529
  35. HYDROXYUREA. [Concomitant]
     Active Substance: HYDROXYUREA
     Dosage: 80 MG, UNK
     Route: 065
     Dates: start: 20170622
  36. FUROSEMIDE. [Concomitant]
     Active Substance: FUROSEMIDE
     Dosage: 40 MG, UNK
     Route: 065
     Dates: start: 20170702, end: 20170703
  37. FUROSEMIDE. [Concomitant]
     Active Substance: FUROSEMIDE
     Dosage: 20 MG, UNK
     Route: 065
     Dates: start: 20170704, end: 20170705
  38. HYDROXYUREA. [Concomitant]
     Active Substance: HYDROXYUREA
     Dosage: 80 MG, UNK
     Route: 065
     Dates: start: 20170626

REACTIONS (33)
  - Cough [Recovered/Resolved]
  - Thirst [Unknown]
  - Platelet count decreased [Unknown]
  - Red blood cell count increased [Unknown]
  - Urine output decreased [Recovered/Resolved]
  - Rectal haemorrhage [Unknown]
  - Insomnia [Not Recovered/Not Resolved]
  - Nasopharyngitis [Unknown]
  - Haemoglobin decreased [Unknown]
  - Diarrhoea [Unknown]
  - Wrong technique in product usage process [Unknown]
  - Underdose [Unknown]
  - Oedema peripheral [Not Recovered/Not Resolved]
  - Hypotension [Unknown]
  - Dysphonia [Unknown]
  - Cerebral disorder [Unknown]
  - Dysstasia [Unknown]
  - Dyspnoea at rest [Not Recovered/Not Resolved]
  - Asthenia [Unknown]
  - Vision blurred [Unknown]
  - Platelet count increased [Unknown]
  - Fall [Unknown]
  - Muscular weakness [Unknown]
  - Pain in extremity [Unknown]
  - Appetite disorder [Unknown]
  - Pruritus [Unknown]
  - White blood cell count decreased [Unknown]
  - Constipation [Recovered/Resolved]
  - General physical health deterioration [Not Recovered/Not Resolved]
  - Pulmonary oedema [Unknown]
  - Influenza like illness [Unknown]
  - White blood cell count increased [Unknown]
  - Anaemia [Unknown]

NARRATIVE: CASE EVENT DATE: 201510
